FAERS Safety Report 5589236-4 (Version None)
Quarter: 2008Q1

REPORT INFORMATION
  Report Type: 
  Country: None (occurrence: None)
  Receive Date: 20080114
  Receipt Date: 20071114
  Transmission Date: 20080703
  Serious: Yes (Other)
  Sender: FDA-Public Use
  Company Number: US-BAYER-US-2007-034014

PATIENT
  Age: 39 Year
  Sex: Female
  Weight: 63 kg

DRUGS (3)
  1. MIRENA [Suspect]
     Indication: CONTRACEPTION
     Route: 015
     Dates: start: 20021119, end: 20070907
  2. NO CONCOMITANT MEDICATION [Concomitant]
  3. LUNELLE [Concomitant]
     Dates: start: 20011001

REACTIONS (2)
  - ABORTION MISSED [None]
  - PREGNANCY WITH CONTRACEPTIVE DEVICE [None]
